FAERS Safety Report 18169808 (Version 1)
Quarter: 2020Q3

REPORT INFORMATION
  Report Type: Spontaneous
  Country: CA (occurrence: CA)
  Receive Date: 20200819
  Receipt Date: 20200819
  Transmission Date: 20201103
  Serious: Yes (Life-Threatening, Other)
  Sender: FDA-Public Use
  Company Number: CA-ACCORD-195879

PATIENT
  Age: 5 Year
  Sex: Male
  Weight: 20 kg

DRUGS (39)
  1. RANITIDINE. [Concomitant]
     Active Substance: RANITIDINE
  2. HYDROCORTISONE. [Suspect]
     Active Substance: HYDROCORTISONE
     Indication: BURKITT^S LYMPHOMA
     Route: 037
  3. HYDROXYZINE [Concomitant]
     Active Substance: HYDROXYZINE HYDROCHLORIDE
  4. CYTARABINE/CYTARABINE HYDROCHLORIDE/CYTARABINE OCFOSFATE [Suspect]
     Active Substance: CYTARABINE
     Indication: BURKITT^S LYMPHOMA
     Route: 042
  5. DEXAMETHASONE. [Concomitant]
     Active Substance: DEXAMETHASONE
  6. KETAMINE [Concomitant]
     Active Substance: KETAMINE
  7. METOCLOPRAMIDE. [Concomitant]
     Active Substance: METOCLOPRAMIDE
  8. MYCAMINE [Concomitant]
     Active Substance: MICAFUNGIN SODIUM
  9. RITUXAN [Suspect]
     Active Substance: RITUXIMAB
     Indication: BURKITT^S LYMPHOMA
     Route: 042
  10. CLONIDINE. [Concomitant]
     Active Substance: CLONIDINE
  11. EPINEPHRINE. [Concomitant]
     Active Substance: EPINEPHRINE
  12. METRONIDAZOLE. [Concomitant]
     Active Substance: METRONIDAZOLE
  13. MOXIFLOXACIN/MOXIFLOXACIN HYDROCHLORIDE [Concomitant]
     Active Substance: MOXIFLOXACIN
  14. METHOTREXATE. [Suspect]
     Active Substance: METHOTREXATE
     Indication: BURKITT^S LYMPHOMA
     Route: 037
  15. CETIRIZINE [Concomitant]
     Active Substance: CETIRIZINE HYDROCHLORIDE
  16. DIMENHYDRINATE. [Concomitant]
     Active Substance: DIMENHYDRINATE
  17. DIPHENHYDRAMINE. [Concomitant]
     Active Substance: DIPHENHYDRAMINE
  18. FOLIC ACID. [Concomitant]
     Active Substance: FOLIC ACID
  19. ONDANSETRON [Concomitant]
     Active Substance: ONDANSETRON
  20. CYTARABINE/CYTARABINE HYDROCHLORIDE/CYTARABINE OCFOSFATE [Suspect]
     Active Substance: CYTARABINE
     Indication: BURKITT^S LYMPHOMA
     Route: 042
  21. PARACETAMOL [Concomitant]
     Active Substance: ACETAMINOPHEN
  22. CEFTAZIDIME/CEFTAZIDIME PENTAHYDRATE [Concomitant]
     Active Substance: CEFTAZIDIME
  23. MEROPENEM. [Concomitant]
     Active Substance: MEROPENEM
  24. PENTAMIDINE [Concomitant]
     Active Substance: PENTAMIDINE
  25. SULFAMETHOXAZOLE/TRIMETHOPRIM [Concomitant]
     Active Substance: SULFAMETHOXAZOLE\TRIMETHOPRIM
  26. TOBRAMYCIN. [Concomitant]
     Active Substance: TOBRAMYCIN
  27. ETOPOSIDE. [Suspect]
     Active Substance: ETOPOSIDE
     Indication: BURKITT^S LYMPHOMA
     Route: 042
  28. FILGRASTIM [Concomitant]
     Active Substance: FILGRASTIM
  29. FUROSEMIDE. [Concomitant]
     Active Substance: FUROSEMIDE
  30. HEPARIN [Concomitant]
     Active Substance: HEPARIN SODIUM
  31. PIPERACILLIN SODIUM/TAZOBACTAM SODIUM [Concomitant]
     Active Substance: PIPERACILLIN SODIUM\TAZOBACTAM SODIUM
  32. MACROGOL [Concomitant]
     Active Substance: POLYETHYLENE GLYCOLS
  33. POTASSIUM [Concomitant]
     Active Substance: POTASSIUM
  34. VANCOMYCIN [Concomitant]
     Active Substance: VANCOMYCIN
  35. ETOPOSIDE. [Suspect]
     Active Substance: ETOPOSIDE
     Indication: BURKITT^S LYMPHOMA
     Route: 042
  36. METHOTREXATE. [Suspect]
     Active Substance: METHOTREXATE
     Indication: BURKITT^S LYMPHOMA
     Route: 037
  37. CIPROFLOXACIN. [Concomitant]
     Active Substance: CIPROFLOXACIN
  38. FLUCONAZOLE. [Concomitant]
     Active Substance: FLUCONAZOLE
  39. HYDROMORPHONE/HYDROMORPHONE HYDROCHLORIDE [Concomitant]
     Active Substance: HYDROMORPHONE

REACTIONS (4)
  - Full blood count decreased [Unknown]
  - Febrile bone marrow aplasia [Unknown]
  - Aplastic anaemia [Unknown]
  - Transfusion [Unknown]
